FAERS Safety Report 5117472-X (Version None)
Quarter: 2006Q3

REPORT INFORMATION
  Report Type: 
  Country: None (occurrence: None)
  Receive Date: 20060926
  Receipt Date: 20060906
  Transmission Date: 20061208
  Serious: No
  Sender: FDA-Public Use
  Company Number: US200609001379

PATIENT
  Sex: Female

DRUGS (2)
  1. CYMBALTA [Suspect]
     Dosage: 60 MG, UNK, UNK
     Dates: start: 20060701
  2. COUMADIN [Concomitant]

REACTIONS (1)
  - CHROMATURIA [None]
